FAERS Safety Report 4518265-4 (Version None)
Quarter: 2004Q4

REPORT INFORMATION
  Report Type: 
  Country: None (occurrence: None)
  Receive Date: 20041130
  Receipt Date: 20040928
  Transmission Date: 20050328
  Serious: Yes (Hospitalization)
  Sender: FDA-Public Use
  Company Number: 2004-BP-08980BP

PATIENT
  Age: 79 Year
  Sex: Male

DRUGS (13)
  1. COMBIVENT [Suspect]
     Indication: CHRONIC OBSTRUCTIVE AIRWAYS DISEASE
     Dosage: SEE TEXT (SEE TEXT, 2 PUFFS
  2. GLUCOPHAGE [Concomitant]
  3. AVANDIA [Concomitant]
  4. CARDURA [Concomitant]
  5. LIPITOR [Concomitant]
  6. COUMADIN [Concomitant]
  7. DIOVAN [Concomitant]
  8. ASA (ACETYLYSALICYLIC ACID) [Concomitant]
  9. NORVASC [Concomitant]
  10. LOPRESSOR [Concomitant]
  11. NASONEX [Concomitant]
  12. RHINOCORT [Concomitant]
  13. CPAP (O2 WITH HUMIDIFIER/CONCENTRATOR) (OXYGEN) [Concomitant]

REACTIONS (5)
  - ARTERIAL OCCLUSIVE DISEASE [None]
  - MEDICAL DEVICE COMPLICATION [None]
  - POST PROCEDURAL COMPLICATION [None]
  - PULMONARY THROMBOSIS [None]
  - TOOTH INFECTION [None]
